FAERS Safety Report 25670394 (Version 6)
Quarter: 2025Q4

REPORT INFORMATION
  Report Type: Spontaneous
  Country: JP (occurrence: JP)
  Receive Date: 20250812
  Receipt Date: 20251224
  Transmission Date: 20260117
  Serious: Yes (Hospitalization, Other)
  Sender: PFIZER
  Company Number: JP-GENMAB-2025-02334

PATIENT
  Age: 8 Decade
  Sex: Female

DRUGS (2)
  1. TIVDAK [Suspect]
     Active Substance: TISOTUMAB VEDOTIN-TFTV
     Indication: Cervix carcinoma
     Dosage: 2 MILLIGRAM/KILOGRAM, INTRAVENOUS INFUSION
     Route: 042
     Dates: start: 20250716
  2. TIVDAK [Suspect]
     Active Substance: TISOTUMAB VEDOTIN-TFTV
     Dosage: 2 MILLIGRAM/KILOGRAM, INTRAVENOUS INFUSION
     Route: 042
     Dates: start: 20250808

REACTIONS (9)
  - Febrile neutropenia [Recovering/Resolving]
  - Bile duct stone [Recovering/Resolving]
  - Interstitial lung disease [Recovering/Resolving]
  - Febrile neutropenia [Recovering/Resolving]
  - Vision blurred [Recovered/Resolved]
  - Rash [Not Recovered/Not Resolved]
  - Nausea [Recovered/Resolved]
  - Abdominal discomfort [Recovered/Resolved]
  - Conjunctivitis [Recovered/Resolved]

NARRATIVE: CASE EVENT DATE: 20250716
